FAERS Safety Report 4549436-9 (Version None)
Quarter: 2005Q1

REPORT INFORMATION
  Report Type: 
  Country: None (occurrence: None)
  Receive Date: 20050110
  Receipt Date: 20050110
  Transmission Date: 20050727
  Serious: Yes (Hospitalization, Other)
  Sender: FDA-Public Use
  Company Number: None

PATIENT
  Age: 25 Year
  Sex: Male
  Weight: 86.1834 kg

DRUGS (3)
  1. CHLORPHENIRAMINE MALEATE AND PSEUDOEPHEDRINE HCL [Suspect]
     Indication: HYPERSENSITIVITY
     Dosage: ORAL
     Route: 048
     Dates: start: 20010907
  2. EPHEDRINE TABLETS [Suspect]
     Indication: WEIGHT DECREASED
     Dosage: 2 PILLS PO QD ORAL
     Route: 048
     Dates: start: 20010701, end: 20010901
  3. EXTRA STRENGTH TYLENOL [Concomitant]

REACTIONS (9)
  - AMNESIA [None]
  - ASTHENIA [None]
  - BALANCE DISORDER [None]
  - CEREBROVASCULAR ACCIDENT [None]
  - EMOTIONAL DISORDER [None]
  - HYPOAESTHESIA [None]
  - LOSS OF CONSCIOUSNESS [None]
  - MEMORY IMPAIRMENT [None]
  - PHOTOPHOBIA [None]
